FAERS Safety Report 9244743 (Version 1)
Quarter: 2013Q1

REPORT INFORMATION
  Report Type: Spontaneous
  Country: US (occurrence: None)
  Receive Date: 20121130
  Receipt Date: 20121130
  Transmission Date: 20140127
  Serious: Yes (Other)
  Sender: FDA-Public Use
  Company Number: PHEH2011US05714

PATIENT
  Age: 59 Year
  Sex: Male

DRUGS (1)
  1. VOLTAREN [Suspect]
     Route: 048
     Dates: end: 201106

REACTIONS (6)
  - Gastric ulcer [None]
  - Duodenal ulcer [None]
  - Erosive oesophagitis [None]
  - Rash [None]
  - Epigastric discomfort [None]
  - Gastritis [None]
